FAERS Safety Report 22725849 (Version 2)
Quarter: 2024Q2

REPORT INFORMATION
  Report Type: Spontaneous
  Country: PT (occurrence: PT)
  Receive Date: 20230719
  Receipt Date: 20240523
  Transmission Date: 20240716
  Serious: No
  Sender: FDA-Public Use
  Company Number: PT-009507513-2307PRT003446

PATIENT
  Age: 40 Year
  Sex: Male

DRUGS (5)
  1. ERTAPENEM SODIUM [Suspect]
     Active Substance: ERTAPENEM SODIUM
     Indication: Campylobacter infection
     Dosage: UNK
     Dates: start: 200911, end: 200911
  2. ERTAPENEM SODIUM [Suspect]
     Active Substance: ERTAPENEM SODIUM
     Dosage: UNK
  3. MEROPENEM [Suspect]
     Active Substance: MEROPENEM
     Indication: Campylobacter infection
     Dosage: UNK
     Dates: start: 200912, end: 201001
  4. GENTAMICIN [Suspect]
     Active Substance: GENTAMICIN
     Indication: Campylobacter infection
     Dosage: UNK
     Dates: start: 200912, end: 201001
  5. GENTAMICIN [Suspect]
     Active Substance: GENTAMICIN
     Dosage: UNK
     Dates: start: 201001, end: 201003

REACTIONS (2)
  - Pathogen resistance [Unknown]
  - Product use in unapproved indication [Unknown]

NARRATIVE: CASE EVENT DATE: 20091101
